FAERS Safety Report 14480269 (Version 1)
Quarter: 2018Q1

REPORT INFORMATION
  Report Type: Spontaneous
  Country: US (occurrence: US)
  Receive Date: 20180201
  Receipt Date: 20180201
  Transmission Date: 20180509
  Serious: Yes (Hospitalization)
  Sender: FDA-Public Use
  Company Number: None

PATIENT
  Age: 63 Year
  Sex: Female

DRUGS (2)
  1. GLIPIZIDE. [Suspect]
     Active Substance: GLIPIZIDE
  2. INSULIN [Suspect]
     Active Substance: INSULIN NOS

REACTIONS (3)
  - Blood glucose decreased [None]
  - Mental status changes [None]
  - Blood glucose increased [None]
